FAERS Safety Report 4284114-5 (Version None)
Quarter: 2004Q1

REPORT INFORMATION
  Report Type: 
  Country: None (occurrence: None)
  Receive Date: 20040130
  Receipt Date: 20040119
  Transmission Date: 20041129
  Serious: Yes (Hospitalization)
  Sender: FDA-Public Use
  Company Number: UK030621

PATIENT
  Age: 69 Year
  Sex: Male
  Weight: 70 kg

DRUGS (6)
  1. IL-IRA [Suspect]
     Indication: RHEUMATOID ARTHRITIS
     Dosage: 100 MG, DAILY, SC
     Route: 058
     Dates: start: 20020522, end: 20030205
  2. METHOTREXATE [Concomitant]
  3. FOLIC ACID [Concomitant]
  4. BISACODYL [Concomitant]
  5. PANTOPRAZOLE [Concomitant]
  6. SULFASALAZINE [Concomitant]

REACTIONS (3)
  - CHEST PAIN [None]
  - PULMONARY TUBERCULOSIS [None]
  - TACHYPNOEA [None]
